FAERS Safety Report 9055200 (Version 2)
Quarter: 2013Q1

REPORT INFORMATION
  Report Type: Spontaneous
  Country: US (occurrence: US)
  Receive Date: 20130206
  Receipt Date: 20130220
  Transmission Date: 20140127
  Serious: Yes (Hospitalization)
  Sender: FDA-Public Use
  Company Number: US-PFIZER INC-2013047019

PATIENT
  Age: 65 Year
  Sex: Male
  Weight: 84.81 kg

DRUGS (3)
  1. PHENYTOIN SODIUM [Suspect]
     Indication: GRAND MAL CONVULSION
     Dosage: UNK
  2. LEVETIRACETAM [Concomitant]
     Indication: TREMOR
     Dosage: 500 MG, 2X/DAY
  3. LEVETIRACETAM [Concomitant]
     Indication: CONVULSION

REACTIONS (1)
  - Drug ineffective [Unknown]
